FAERS Safety Report 7561740-9 (Version None)
Quarter: 2011Q2

REPORT INFORMATION
  Report Type: 
  Country: None (occurrence: None)
  Receive Date: 20110621
  Receipt Date: 20110113
  Transmission Date: 20111010
  Serious: No
  Sender: FDA-Public Use
  Company Number: US-ASTRAZENECA-2011SE02371

PATIENT
  Age: 20 Year
  Sex: Female
  Weight: 13.6 kg

DRUGS (1)
  1. PULMICORT [Suspect]
     Indication: PNEUMONIA
     Route: 055

REACTIONS (2)
  - PALLOR [None]
  - DIARRHOEA [None]
